FAERS Safety Report 14014719 (Version 1)
Quarter: 2017Q3

REPORT INFORMATION
  Report Type: Spontaneous
  Country: US (occurrence: US)
  Receive Date: 20170927
  Receipt Date: 20170927
  Transmission Date: 20171128
  Serious: No
  Sender: FDA-Public Use
  Company Number: US-PFIZER INC-2017413590

PATIENT
  Age: 87 Year

DRUGS (3)
  1. ALPRAZOLAM. [Suspect]
     Active Substance: ALPRAZOLAM
     Indication: ANXIETY
  2. ASPIRIN. [Suspect]
     Active Substance: ASPIRIN
     Dosage: 81 MG, 1X/DAY
  3. ALPRAZOLAM. [Suspect]
     Active Substance: ALPRAZOLAM
     Indication: PANIC ATTACK
     Dosage: 0.75 MG(THREE QUARTERS OF THE BLUE 1 MG), 4X/DAY

REACTIONS (5)
  - Palpitations [Unknown]
  - Nightmare [Unknown]
  - Feeling abnormal [Unknown]
  - Hyperventilation [Unknown]
  - Fatigue [Unknown]
